FAERS Safety Report 17879735 (Version 1)
Quarter: 2020Q2

REPORT INFORMATION
  Report Type: Spontaneous
  Country: CA (occurrence: CA)
  Receive Date: 20200610
  Receipt Date: 20200610
  Transmission Date: 20200714
  Serious: Yes (Other)
  Sender: FDA-Public Use
  Company Number: CA-ACCORD-184579

PATIENT
  Age: 67 Year
  Sex: Female

DRUGS (3)
  1. ACH-CAPECITABINE [Suspect]
     Active Substance: CAPECITABINE
     Indication: RECTAL CANCER
     Dosage: 2 EVERY 1 DAYS
     Route: 048
  2. OXALIPLATIN. [Suspect]
     Active Substance: OXALIPLATIN
     Indication: RECTAL CANCER
     Dosage: 1 EVERY 3 WEEKS(INJECTION?SINGLE USE VIALS)
     Route: 042
  3. ACH-CAPECITABINE [Suspect]
     Active Substance: CAPECITABINE
     Indication: RECTAL CANCER
     Dosage: 2 EVERY 1 DAYS
     Route: 048

REACTIONS (3)
  - Limb discomfort [Unknown]
  - Swollen tongue [Unknown]
  - Dysarthria [Unknown]
